FAERS Safety Report 23296406 (Version 1)
Quarter: 2023Q4

REPORT INFORMATION
  Report Type: Spontaneous
  Country: US (occurrence: None)
  Receive Date: 20231214
  Receipt Date: 20231214
  Transmission Date: 20240110
  Serious: No
  Sender: FDA-Public Use
  Company Number: None

PATIENT
  Sex: Male

DRUGS (1)
  1. PROMACTA [Suspect]
     Active Substance: ELTROMBOPAG OLAMINE
     Indication: Haemorrhagic disorder
     Dosage: FREQUENCY : DAILY;?
     Route: 048
     Dates: start: 20230608

REACTIONS (7)
  - Transient ischaemic attack [None]
  - Cerebral disorder [None]
  - Frequent bowel movements [None]
  - Nausea [None]
  - Fatigue [None]
  - Loss of personal independence in daily activities [None]
  - Abdominal pain [None]
